FAERS Safety Report 10211753 (Version 2)
Quarter: 2014Q2

REPORT INFORMATION
  Report Type: Report from Study
  Country: US (occurrence: US)
  Receive Date: 20140602
  Receipt Date: 20140606
  Transmission Date: 20141212
  Serious: Yes (Other)
  Sender: FDA-Public Use
  Company Number: US-ABBVIE-14P-163-1243114-00

PATIENT
  Sex: Female
  Weight: 78.54 kg

DRUGS (4)
  1. HUMIRA [Suspect]
     Indication: PSORIASIS
     Dates: end: 20140523
  2. TYLENOL [Concomitant]
     Indication: PAIN
     Dosage: AS REQUIRED
  3. IBUPROFEN [Concomitant]
     Indication: PAIN
     Dosage: AS REQUIRED
  4. ANTIHISTAMINES [Concomitant]
     Indication: HYPERSENSITIVITY
     Dosage: AS REQUIRED

REACTIONS (1)
  - Thoracic outlet syndrome [Recovering/Resolving]
